FAERS Safety Report 4691429-5 (Version None)
Quarter: 2005Q3

REPORT INFORMATION
  Report Type: 
  Country: None (occurrence: None)
  Receive Date: 20050615
  Receipt Date: 20050525
  Transmission Date: 20060218
  Serious: Yes (Death, Disabling)
  Sender: FDA-Public Use
  Company Number: 1827

PATIENT
  Age: 67 Year
  Sex: Female
  Weight: 51.5 kg

DRUGS (10)
  1. ONTAK [Suspect]
     Indication: B-CELL LYMPHOMA
     Dosage: 18 UG/KG/D QD IV
     Route: 042
     Dates: start: 20050429, end: 20050430
  2. ONTAK [Suspect]
     Indication: B-CELL LYMPHOMA
     Dosage: 18 UG/KG/D QD IV
     Route: 042
     Dates: start: 20050502, end: 20050502
  3. ONTAK [Suspect]
     Indication: B-CELL LYMPHOMA
     Dosage: 25 UG/KG/D QD IV
     Route: 042
  4. ALBUTEROL [Concomitant]
  5. GUAIFENESIN [Concomitant]
  6. IBUPROFEN [Concomitant]
  7. MONTELUKAST [Concomitant]
  8. OXYGEN [Concomitant]
  9. PANTOPRAZOLE [Concomitant]
  10. PREDNISOLONE [Concomitant]

REACTIONS (6)
  - CARDIO-RESPIRATORY ARREST [None]
  - DISEASE PROGRESSION [None]
  - EAR CONGESTION [None]
  - EAR DISCOMFORT [None]
  - HYPOACUSIS [None]
  - NON-HODGKIN'S LYMPHOMA [None]
